FAERS Safety Report 20904089 (Version 1)
Quarter: 2022Q2

REPORT INFORMATION
  Report Type: Spontaneous
  Country: US (occurrence: US)
  Receive Date: 20220602
  Receipt Date: 20220602
  Transmission Date: 20220721
  Serious: No
  Sender: FDA-Public Use
  Company Number: US-AMGEN-USASP2022091926

PATIENT
  Age: 58 Year
  Sex: Female

DRUGS (6)
  1. PEGFILGRASTIM [Suspect]
     Active Substance: PEGFILGRASTIM
     Indication: Prophylaxis
     Dosage: 6 MILLIGRAM
     Route: 065
  2. BEVACIZUMAB [Suspect]
     Active Substance: BEVACIZUMAB
     Indication: Gastrointestinal adenocarcinoma
     Dosage: 5 MILLIGRAM/KILOGRAM
     Route: 065
  3. FLUOROURACIL [Concomitant]
     Active Substance: FLUOROURACIL
     Dosage: 1600 MILLIGRAM/SQ. METER, QD FOR 46 HRS
  4. LEUCOVORIN [Concomitant]
     Active Substance: LEUCOVORIN
     Dosage: 200 MILLIGRAM/SQ. METER
  5. IRINOTECAN [Concomitant]
     Active Substance: IRINOTECAN
     Dosage: 165 MILLIGRAM/SQ. METER
  6. OXALIPLATIN [Concomitant]
     Active Substance: OXALIPLATIN
     Dosage: 85 MILLIGRAM/SQ. METER

REACTIONS (3)
  - Carotidynia [Recovered/Resolved]
  - Pyrexia [Recovering/Resolving]
  - Neutrophil count decreased [Recovering/Resolving]

NARRATIVE: CASE EVENT DATE: 20210601
